FAERS Safety Report 5296608-4 (Version None)
Quarter: 2007Q2

REPORT INFORMATION
  Report Type: 
  Country: None (occurrence: None)
  Receive Date: 20070413
  Receipt Date: 20070402
  Transmission Date: 20071010
  Serious: Yes (Death, Life-Threatening)
  Sender: FDA-Public Use
  Company Number: KR-PFIZER INC-2006144102

PATIENT
  Sex: Female
  Weight: 45 kg

DRUGS (8)
  1. ZYVOX [Suspect]
     Indication: ENTEROCOCCAL INFECTION
     Route: 042
     Dates: start: 20060515, end: 20060529
  2. ZYVOX [Suspect]
     Indication: PNEUMONIA
  3. MEROPEN [Concomitant]
     Indication: PNEUMONIA
     Route: 042
     Dates: start: 20060515, end: 20060519
  4. AMPHOTERICIN B [Concomitant]
     Indication: PNEUMONIA
     Dosage: DAILY DOSE:80MG
     Route: 042
     Dates: start: 20060522, end: 20060530
  5. AMPHOTERICIN B [Concomitant]
     Indication: FUNGAL INFECTION
  6. ALL OTHER THERAPEUTIC PRODUCTS [Concomitant]
     Indication: PNEUMONIA
     Route: 042
     Dates: start: 20060515, end: 20060527
  7. AZACTAM [Concomitant]
     Indication: PNEUMONIA
     Route: 042
     Dates: start: 20060527, end: 20060530
  8. ITRACONAZOLE [Concomitant]
     Indication: PNEUMONIA
     Dosage: DAILY DOSE:200MG
     Route: 042
     Dates: start: 20060512, end: 20060522

REACTIONS (2)
  - PNEUMONIA [None]
  - SEPSIS [None]
